FAERS Safety Report 12246401 (Version 2)
Quarter: 2016Q2

REPORT INFORMATION
  Report Type: Spontaneous
  Country: US (occurrence: US)
  Receive Date: 20160407
  Receipt Date: 20160510
  Transmission Date: 20160815
  Serious: Yes (Hospitalization, Other)
  Sender: FDA-Public Use
  Company Number: US-SMITH AND NEPHEW, INC-2016SMT00200

PATIENT
  Age: 88 Year
  Sex: Female
  Weight: 52.61 kg

DRUGS (5)
  1. FISH OIL [Concomitant]
     Active Substance: FISH OIL
     Dosage: UNK
  2. UNSPECIFIED BLOOD PRESSURE MEDICATION [Concomitant]
     Active Substance: UNSPECIFIED INGREDIENT
     Dosage: UNK
  3. COLLAGENASE SANTYL [Suspect]
     Active Substance: COLLAGENASE CLOSTRIDIUM HISTOLYTICUM
     Indication: SKIN ULCER
     Dosage: UNK UNK, 1X/DAY
     Route: 061
     Dates: start: 20160225
  4. UNSPECIFIED CHOLESTEROL MEDICATION [Concomitant]
     Dosage: UNK
  5. TURMERIC PILLS [Concomitant]
     Dosage: 300 MG, 3X/DAY
     Dates: start: 201601

REACTIONS (8)
  - Application site pain [Not Recovered/Not Resolved]
  - Decreased appetite [Unknown]
  - Drug ineffective [Unknown]
  - Application site discharge [Unknown]
  - Weight decreased [Unknown]
  - Skin operation [Unknown]
  - Necrosis [Unknown]
  - Insomnia [Unknown]

NARRATIVE: CASE EVENT DATE: 2016
